FAERS Safety Report 9200229 (Version 4)
Quarter: 2014Q1

REPORT INFORMATION
  Report Type: Spontaneous
  Country: US (occurrence: US)
  Receive Date: 20130329
  Receipt Date: 20140124
  Transmission Date: 20141002
  Serious: Yes (Hospitalization, Disabling, Other)
  Sender: FDA-Public Use
  Company Number: US-009507513-1303USA010695

PATIENT
  Sex: Female
  Weight: 82.86 kg

DRUGS (5)
  1. FOSAMAX [Suspect]
     Indication: OSTEOPENIA
     Dosage: 70 MG, UNK
     Route: 048
     Dates: start: 200105, end: 200805
  2. ALENDRONATE SODIUM [Suspect]
     Indication: OSTEOPENIA
     Dosage: 70 MG, UNK
     Route: 048
     Dates: start: 200805, end: 201005
  3. CORTICOSTEROIDS (UNSPECIFIED) [Concomitant]
     Dosage: UNK, PRN
     Dates: start: 2006
  4. ADVAIR [Concomitant]
     Indication: CHRONIC OBSTRUCTIVE PULMONARY DISEASE
  5. ESTROGENS (UNSPECIFIED) [Concomitant]
     Dosage: UNK
     Dates: start: 1996

REACTIONS (32)
  - Bone graft [Unknown]
  - Jaw fracture [Unknown]
  - Jaw operation [Unknown]
  - Jaw operation [Unknown]
  - Jaw operation [Unknown]
  - Sequestrectomy [Unknown]
  - Infection [Unknown]
  - Biopsy bone [Unknown]
  - Osteomyelitis chronic [Not Recovered/Not Resolved]
  - Osteonecrosis of jaw [Not Recovered/Not Resolved]
  - Abscess [Unknown]
  - Hypertension [Unknown]
  - Blood cholesterol increased [Unknown]
  - Type 2 diabetes mellitus [Unknown]
  - Stress urinary incontinence [Unknown]
  - Atrophic vulvovaginitis [Unknown]
  - Anaemia [Unknown]
  - Anxiety [Unknown]
  - Deformity [Unknown]
  - Temporomandibular joint syndrome [Unknown]
  - Post procedural infection [Unknown]
  - Foot fracture [Unknown]
  - Alpha haemolytic streptococcal infection [Unknown]
  - Body height decreased [Unknown]
  - Carotid arteriosclerosis [Unknown]
  - Dental caries [Unknown]
  - Foot fracture [Unknown]
  - Oedema peripheral [Unknown]
  - Gastrooesophageal reflux disease [Unknown]
  - Diarrhoea [Unknown]
  - Diarrhoea [Recovered/Resolved]
  - Nausea [Recovered/Resolved]
